FAERS Safety Report 8844616 (Version 1)
Quarter: 2012Q4

REPORT INFORMATION
  Report Type: 
  Country: US (occurrence: US)
  Receive Date: 20121017
  Receipt Date: 20121017
  Transmission Date: 20130627
  Serious: Yes (Other)
  Sender: FDA-Public Use
  Company Number: US-PFIZER INC-2012258068

PATIENT
  Age: 33 Year
  Sex: Female
  Weight: 81.63 kg

DRUGS (3)
  1. CHANTIX [Suspect]
     Indication: SMOKING CESSATION THERAPY
     Dosage: 0.5 mg, daily
     Dates: start: 20121001, end: 201210
  2. CHANTIX [Suspect]
     Dosage: 0.5 mg, UNK
     Dates: start: 201210, end: 201210
  3. CHANTIX [Suspect]
     Dosage: 1 mg, 2x/day
     Dates: start: 201210

REACTIONS (5)
  - Weight increased [Unknown]
  - Abnormal dreams [Not Recovered/Not Resolved]
  - Somnolence [Not Recovered/Not Resolved]
  - Anger [Recovered/Resolved]
  - Enuresis [Unknown]
